FAERS Safety Report 7275877-5 (Version None)
Quarter: 2011Q1

REPORT INFORMATION
  Report Type: 
  Country: None (occurrence: None)
  Receive Date: 20110202
  Receipt Date: 20110202
  Transmission Date: 20110831
  Serious: Yes (Hospitalization)
  Sender: FDA-Public Use
  Company Number: None

PATIENT
  Sex: Male
  Weight: 110.9 kg

DRUGS (6)
  1. PERCOCET [Concomitant]
  2. COLACE [Concomitant]
  3. DIOVAN HCT [Concomitant]
  4. GM-CSF, 250MCG, BERLEX, THEN BAYER [Suspect]
     Indication: PROSTATE CANCER
     Dosage: 250MCG SQ TIW
     Route: 058
     Dates: start: 20060403, end: 20060421
  5. LENALIDOMIDE [Suspect]
     Indication: PROSTATE CANCER
     Dosage: 25MG PO DAILY 21/28 DAYS
     Route: 048
     Dates: start: 20060403, end: 20060422
  6. ASPIRIN [Concomitant]

REACTIONS (5)
  - GASTRITIS [None]
  - DIARRHOEA HAEMORRHAGIC [None]
  - DUODENITIS [None]
  - HYPOAESTHESIA [None]
  - HAEMATEMESIS [None]
